FAERS Safety Report 10384841 (Version 2)
Quarter: 2014Q3

REPORT INFORMATION
  Report Type: Report from Study
  Country: JP (occurrence: JP)
  Receive Date: 20140814
  Receipt Date: 20140814
  Transmission Date: 20150326
  Serious: Yes (Hospitalization)
  Sender: FDA-Public Use
  Company Number: JP-PFIZER INC-2014205542

PATIENT
  Age: 7 Decade
  Sex: Male

DRUGS (1)
  1. LYRICA [Suspect]
     Active Substance: PREGABALIN
     Route: 048

REACTIONS (4)
  - Spinal ligament ossification [Unknown]
  - Feeling abnormal [Recovered/Resolved with Sequelae]
  - Fall [Recovered/Resolved with Sequelae]
  - Injury [Recovered/Resolved with Sequelae]

NARRATIVE: CASE EVENT DATE: 20110211
